FAERS Safety Report 7053323-4 (Version None)
Quarter: 2010Q4

REPORT INFORMATION
  Report Type: 
  Country: None (occurrence: None)
  Receive Date: 20101020
  Receipt Date: 20101006
  Transmission Date: 20110411
  Serious: Yes (Other)
  Sender: FDA-Public Use
  Company Number: GB-RANBAXY-2010R1-38815

PATIENT

DRUGS (5)
  1. TOPIRAMATE [Suspect]
     Indication: MIGRAINE
     Dosage: 100MG, UNK
     Route: 048
     Dates: start: 20100724, end: 20100914
  2. AMITRIPTYLINE HCL [Concomitant]
     Indication: DEPRESSION
     Dosage: 100MG, QD
     Route: 048
     Dates: start: 20070101
  3. ACETAMINOPHEN AND CODEINE PHOSPHATE [Concomitant]
     Indication: HEADACHE
     Dosage: UNK, AS NECESSARY
     Route: 048
     Dates: start: 20070101
  4. NEURONTIN [Concomitant]
     Indication: MIGRAINE
     Dosage: 600MG, BID
     Route: 048
     Dates: start: 20100101
  5. ZOLMITRIPTAN [Concomitant]
     Indication: MIGRAINE
     Dosage: 2.5MG, AS NECESSARY
     Route: 048
     Dates: start: 20070101

REACTIONS (2)
  - NEUTROPENIA [None]
  - RASH [None]
